FAERS Safety Report 8991314 (Version 2)
Quarter: 2013Q4

REPORT INFORMATION
  Report Type: Spontaneous
  Country: GB (occurrence: GB)
  Receive Date: 20121231
  Receipt Date: 20131008
  Transmission Date: 20140711
  Serious: Yes (Death, Life-Threatening)
  Sender: FDA-Public Use
  Company Number: GB-BRISTOL-MYERS SQUIBB COMPANY-17225863

PATIENT
  Age: 77 Year
  Sex: Female

DRUGS (9)
  1. ORENCIA FOR INJ [Suspect]
     Indication: RHEUMATOID ARTHRITIS
     Route: 042
     Dates: start: 20071030
  2. BUTRANS [Concomitant]
     Dosage: TRANSDERMAL PATCH
     Route: 062
  3. FERROUS SULFATE [Concomitant]
  4. ASPIRIN [Concomitant]
  5. PAROXETINE [Concomitant]
  6. OMEPRAZOLE [Concomitant]
  7. PRAVASTATINE [Concomitant]
  8. CALCIUM + VITAMIN D [Concomitant]
  9. PREDNISOLONE [Concomitant]

REACTIONS (2)
  - Cerebrovascular accident [Fatal]
  - Convulsion [Unknown]
